FAERS Safety Report 6752717-1 (Version None)
Quarter: 2010Q2

REPORT INFORMATION
  Report Type: 
  Country: None (occurrence: None)
  Receive Date: 20100602
  Receipt Date: 20100526
  Transmission Date: 20101027
  Serious: Yes (Hospitalization, Other)
  Sender: FDA-Public Use
  Company Number: US-AMGEN-QUU403620

PATIENT
  Sex: Male
  Weight: 77.2 kg

DRUGS (11)
  1. NPLATE [Suspect]
     Indication: IDIOPATHIC THROMBOCYTOPENIC PURPURA
     Dates: start: 20090528, end: 20100127
  2. IMMU-G [Concomitant]
     Route: 042
  3. RITUXAN [Concomitant]
     Dates: start: 20080226
  4. AMBIEN [Concomitant]
  5. PRILOSEC [Concomitant]
  6. NEURONTIN [Concomitant]
  7. SIMVASTATIN [Concomitant]
  8. MUCINEX [Concomitant]
  9. VICODIN [Concomitant]
  10. KALETRA [Concomitant]
  11. SYNTHROID [Concomitant]

REACTIONS (22)
  - ANAEMIA [None]
  - ANTI-HBC IGG ANTIBODY POSITIVE [None]
  - ARTHRALGIA [None]
  - BONE MARROW RETICULIN FIBROSIS [None]
  - CONFUSIONAL STATE [None]
  - DRUG HYPERSENSITIVITY [None]
  - ECCHYMOSIS [None]
  - EPISTAXIS [None]
  - FALL [None]
  - GASTROENTERITIS [None]
  - GASTROINTESTINAL HAEMORRHAGE [None]
  - GINGIVAL BLEEDING [None]
  - HAEMATURIA [None]
  - HEPATITIS B [None]
  - HERPES ZOSTER [None]
  - HYPOTENSION [None]
  - IDIOPATHIC THROMBOCYTOPENIC PURPURA [None]
  - NEUTROPENIA [None]
  - PETECHIAE [None]
  - RECTAL HAEMORRHAGE [None]
  - THERAPEUTIC RESPONSE DECREASED [None]
  - THROMBOCYTOPENIA [None]
